FAERS Safety Report 15398383 (Version 1)
Quarter: 2018Q3

REPORT INFORMATION
  Report Type: Report from Study
  Country: US (occurrence: US)
  Receive Date: 20180918
  Receipt Date: 20180918
  Transmission Date: 20181010
  Serious: Yes (Hospitalization, Other)
  Sender: FDA-Public Use
  Company Number: US-BRISTOL-MYERS SQUIBB COMPANY-BMS-2018-084874

PATIENT
  Sex: Female
  Weight: 48.9 kg

DRUGS (2)
  1. NIVOLUMAB [Suspect]
     Active Substance: NIVOLUMAB
     Indication: BREAST CANCER
     Dosage: 480 MG, Q4WK
     Route: 042
     Dates: start: 20180731
  2. CABOZANTINIB [Suspect]
     Active Substance: CABOZANTINIB
     Indication: BREAST CANCER
     Dosage: 40 MG, DAILY
     Route: 048
     Dates: start: 20180731

REACTIONS (3)
  - Dehydration [Unknown]
  - Pulmonary embolism [Unknown]
  - Syncope [Unknown]

NARRATIVE: CASE EVENT DATE: 20180909
